FAERS Safety Report 7134605-4 (Version None)
Quarter: 2010Q4

REPORT INFORMATION
  Report Type: 
  Country: None (occurrence: None)
  Receive Date: 20101130
  Receipt Date: 20101130
  Transmission Date: 20110411
  Serious: Yes (Hospitalization)
  Sender: FDA-Public Use
  Company Number: None

PATIENT
  Sex: Male

DRUGS (1)
  1. VIRACEPT [Suspect]
     Indication: MENTAL STATUS CHANGES

REACTIONS (2)
  - CONVULSION [None]
  - DELIRIUM [None]
